FAERS Safety Report 7414229-1 (Version None)
Quarter: 2011Q2

REPORT INFORMATION
  Report Type: 
  Country: None (occurrence: None)
  Receive Date: 20110414
  Receipt Date: 20110403
  Transmission Date: 20111010
  Serious: Yes (Hospitalization, Other)
  Sender: FDA-Public Use
  Company Number: CA-ELI_LILLY_AND_COMPANY-CA201104000816

PATIENT
  Age: 62 Year
  Sex: Female

DRUGS (5)
  1. FORTEO [Suspect]
     Indication: OSTEOPOROSIS
     Dosage: 20 UG, QD
     Route: 058
     Dates: start: 20091218
  2. CALCIUM [Concomitant]
  3. VITAMIN D [Concomitant]
  4. PREDNISONE [Concomitant]
  5. ANTIHYPERTENSIVES [Concomitant]

REACTIONS (3)
  - EYE DISORDER [None]
  - UPPER LIMB FRACTURE [None]
  - FALL [None]
